FAERS Safety Report 12475716 (Version 2)
Quarter: 2016Q2

REPORT INFORMATION
  Report Type: Spontaneous
  Country: BR (occurrence: BR)
  Receive Date: 20160617
  Receipt Date: 20160617
  Transmission Date: 20160815
  Serious: Yes (Other)
  Sender: FDA-Public Use
  Company Number: BR-JNJFOC-20160609375

PATIENT
  Sex: Male

DRUGS (1)
  1. STELARA [Suspect]
     Active Substance: USTEKINUMAB
     Indication: PSORIASIS
     Route: 058
     Dates: end: 201511

REACTIONS (6)
  - Impaired work ability [Unknown]
  - Depression [Unknown]
  - Nervous system disorder [Unknown]
  - Psoriasis [Unknown]
  - Bedridden [Unknown]
  - Pain [Unknown]
